FAERS Safety Report 5168954-6 (Version None)
Quarter: 2006Q4

REPORT INFORMATION
  Report Type: 
  Country: None (occurrence: None)
  Receive Date: 20061211
  Receipt Date: 20051223
  Transmission Date: 20070319
  Serious: Yes (Other)
  Sender: FDA-Public Use
  Company Number: NL-GLAXOSMITHKLINE-B0405159A

PATIENT
  Age: 55 Year
  Sex: Female
  Weight: 68 kg

DRUGS (3)
  1. PAROXETINE HYDROCHLORIDE [Suspect]
     Indication: MOOD ALTERED
     Dosage: 20MG PER DAY
     Route: 065
     Dates: start: 20050801, end: 20050915
  2. IMIGRAN [Concomitant]
  3. CLONIDINE [Concomitant]

REACTIONS (4)
  - DYSKINESIA [None]
  - DYSPHONIA [None]
  - HYPERAESTHESIA [None]
  - MUSCLE ATROPHY [None]
